FAERS Safety Report 9851303 (Version 1)
Quarter: 2014Q1

REPORT INFORMATION
  Report Type: Spontaneous
  Country: SK (occurrence: SK)
  Receive Date: 20140129
  Receipt Date: 20140129
  Transmission Date: 20141002
  Serious: Yes (Other)
  Sender: FDA-Public Use
  Company Number: SK-PFIZER INC-2014023791

PATIENT
  Sex: Female

DRUGS (3)
  1. SUNITINIB MALATE [Suspect]
     Indication: RENAL CANCER
     Dosage: 50 MG CYCLIC, 4 WEEKS/ 2 WEEKS
     Dates: start: 200511, end: 200608
  2. SUNITINIB MALATE [Suspect]
     Dosage: 37.5 MG CYCLIC, 4 WEEKS/ 2 WEEKS
     Dates: start: 200608, end: 20100519
  3. EUTHYROX [Concomitant]
     Dosage: UNK
     Dates: start: 2001

REACTIONS (6)
  - Liver function test abnormal [Unknown]
  - Palmar-plantar erythrodysaesthesia syndrome [Unknown]
  - Gallbladder disorder [Unknown]
  - Stomatitis [Unknown]
  - Disease progression [Unknown]
  - Renal cancer [Unknown]
